FAERS Safety Report 23197395 (Version 1)
Quarter: 2023Q4

REPORT INFORMATION
  Report Type: Spontaneous
  Country: JP (occurrence: JP)
  Receive Date: 20231117
  Receipt Date: 20231117
  Transmission Date: 20240109
  Serious: Yes (Other)
  Sender: FDA-Public Use
  Company Number: JP-SUN PHARMACEUTICAL INDUSTRIES LTD-2023RR-418692

PATIENT
  Age: 64 Year
  Sex: Male

DRUGS (6)
  1. ACETAMINOPHEN [Suspect]
     Active Substance: ACETAMINOPHEN
     Indication: Product used for unknown indication
     Dosage: UNK
     Route: 065
  2. CARBOPLATIN [Suspect]
     Active Substance: CARBOPLATIN
     Indication: Disseminated intravascular coagulation
     Dosage: AUC5
     Route: 065
  3. DEXAMETHASONE [Suspect]
     Active Substance: DEXAMETHASONE
     Indication: COVID-19
     Dosage: 6 MILLIGRAM, UNK
     Route: 065
  4. RASBURICASE [Suspect]
     Active Substance: RASBURICASE
     Indication: Product used for unknown indication
     Dosage: 12 MILLIGRAM, UNK
     Route: 042
  5. ETOPOSIDE [Suspect]
     Active Substance: ETOPOSIDE
     Indication: Disseminated intravascular coagulation
     Dosage: 100 MILLIGRAM/SQ. METER
     Route: 065
  6. NAFAMOSTAT MESYLATE [Suspect]
     Active Substance: NAFAMOSTAT MESYLATE
     Indication: Embolism
     Dosage: 100 MILLIGRAM, DAILY

REACTIONS (5)
  - Disseminated intravascular coagulation [Recovered/Resolved]
  - Neutropenia [Unknown]
  - Drug ineffective [Unknown]
  - Therapeutic product effect incomplete [Unknown]
  - Off label use [Unknown]
